FAERS Safety Report 5860840-9 (Version None)
Quarter: 2008Q3

REPORT INFORMATION
  Report Type: 
  Country: None (occurrence: None)
  Receive Date: 20080827
  Receipt Date: 20080122
  Transmission Date: 20090109
  Serious: No
  Sender: FDA-Public Use
  Company Number: US-ABBOTT-07P-163-0427952-00

PATIENT
  Sex: Male
  Weight: 100 kg

DRUGS (7)
  1. COATED PDS [Suspect]
     Indication: HIGH DENSITY LIPOPROTEIN DECREASED
     Route: 048
     Dates: start: 20070801, end: 20071015
  2. COATED PDS [Suspect]
     Route: 048
     Dates: start: 20071015, end: 20071203
  3. ENALAPRIL MALEATE [Concomitant]
     Indication: BLOOD PRESSURE
  4. METOPROLOL TARTRATE [Concomitant]
     Indication: BLOOD PRESSURE
  5. TRIMIZINE [Concomitant]
     Indication: BLOOD PRESSURE
  6. TERAZOSIN HYDROCHLORIDE [Concomitant]
     Indication: DYSURIA
  7. ATORVASTATIN CALCIUM [Concomitant]
     Indication: BLOOD CHOLESTEROL
     Dates: start: 20071015

REACTIONS (1)
  - ATRIAL FIBRILLATION [None]
